FAERS Safety Report 23984335 (Version 2)
Quarter: 2024Q3

REPORT INFORMATION
  Report Type: Spontaneous
  Country: JP (occurrence: JP)
  Receive Date: 20240618
  Receipt Date: 20240808
  Transmission Date: 20241016
  Serious: Yes (Death, Life-Threatening, Hospitalization)
  Sender: MSN LABORATORIES
  Company Number: JP-MLMSERVICE-20240524-PI074389-00226-1

PATIENT

DRUGS (3)
  1. LACOSAMIDE [Suspect]
     Active Substance: LACOSAMIDE
     Indication: Product used for unknown indication
     Route: 065
  2. MIRTAZAPINE [Suspect]
     Active Substance: MIRTAZAPINE
     Indication: Product used for unknown indication
     Route: 065
  3. LEVETIRACETAM [Concomitant]
     Active Substance: LEVETIRACETAM
     Indication: Product used for unknown indication
     Route: 065

REACTIONS (2)
  - Overdose [Fatal]
  - Toxicity to various agents [Fatal]
